FAERS Safety Report 6078507-3 (Version None)
Quarter: 2009Q1

REPORT INFORMATION
  Report Type: 
  Country: None (occurrence: None)
  Receive Date: 20090211
  Receipt Date: 20090211
  Transmission Date: 20090719
  Serious: Yes (Life-Threatening, Hospitalization)
  Sender: FDA-Public Use
  Company Number: None

PATIENT
  Age: 45 Year
  Sex: Female
  Weight: 65.7716 kg

DRUGS (1)
  1. YASMIN [Suspect]
     Indication: MENSTRUAL DISORDER
     Dosage: 1 DAILY PO ON AND OFF FOR 7
     Route: 048
     Dates: start: 20080501, end: 20090101

REACTIONS (1)
  - PULMONARY EMBOLISM [None]
